FAERS Safety Report 7425278-1 (Version None)
Quarter: 2011Q2

REPORT INFORMATION
  Report Type: 
  Country: None (occurrence: None)
  Receive Date: 20110414
  Receipt Date: 20110329
  Transmission Date: 20111010
  Serious: Yes (Death, Hospitalization)
  Sender: FDA-Public Use
  Company Number: 2010002818

PATIENT
  Age: 79 Year
  Sex: Female

DRUGS (11)
  1. ASPIRIN [Concomitant]
  2. PANTOPRAZOLE [Concomitant]
  3. AMITRIPTYLINE (AMITRIPTYLINE) [Concomitant]
  4. NEO-CYTAMEN (HYAROXOCOBALAMIN) [Concomitant]
  5. SIMVASTATIN [Concomitant]
  6. IRBESARTAN [Concomitant]
  7. VENTOLIN [Concomitant]
  8. SYMBICORT (SYMBICORT) [Concomitant]
  9. ERLOTINIB (ERLOTINIB) (TABLET) [Suspect]
     Indication: NON-SMALL CELL LUNG CANCER
     Dosage: (150 MG,QD DAY 15-28),ORAL
     Route: 048
     Dates: start: 20100622
  10. GEMCITABTNE (GEMCITABINE) [Suspect]
     Indication: NON-SMALL CELL LUNG CANCER
     Dosage: (2100 MG,DAYS 1 AND 8), INTRAVENOUS
     Route: 042
     Dates: start: 20100607
  11. LEVOTHYROXINE SODIUM [Concomitant]

REACTIONS (7)
  - WHITE BLOOD CELL COUNT INCREASED [None]
  - PLATELET COUNT DECREASED [None]
  - DYSPNOEA [None]
  - RESPIRATORY FAILURE [None]
  - PLEURAL EFFUSION [None]
  - HAEMOGLOBIN DECREASED [None]
  - PULMONARY EMBOLISM [None]
